FAERS Safety Report 14255020 (Version 1)
Quarter: 2017Q4

REPORT INFORMATION
  Report Type: Report from Study
  Country: PK (occurrence: PK)
  Receive Date: 20171206
  Receipt Date: 20171206
  Transmission Date: 20180321
  Serious: Yes (Death)
  Sender: FDA-Public Use
  Company Number: PHHY2017PK179834

PATIENT
  Sex: Female
  Weight: 39 kg

DRUGS (1)
  1. GLIVEC [Suspect]
     Active Substance: IMATINIB MESYLATE
     Indication: GASTROINTESTINAL STROMAL TUMOUR
     Dosage: 600 MG, BID
     Route: 048
     Dates: start: 20160113

REACTIONS (2)
  - Abdominal discomfort [Fatal]
  - Red blood cell count decreased [Fatal]
